FAERS Safety Report 21522357 (Version 1)
Quarter: 2022Q4

REPORT INFORMATION
  Report Type: Spontaneous
  Country: RO (occurrence: RO)
  Receive Date: 20221028
  Receipt Date: 20221028
  Transmission Date: 20230112
  Serious: Yes (Hospitalization, Other)
  Sender: FDA-Public Use
  Company Number: RO-STRIDES ARCOLAB LIMITED-2022SP014247

PATIENT
  Age: 53 Year
  Sex: Male

DRUGS (2)
  1. PREDNISOLONE [Suspect]
     Active Substance: PREDNISOLONE
     Indication: Pemphigus
     Dosage: UNK (HIGH DOSES )
     Route: 065
  2. AZATHIOPRINE [Suspect]
     Active Substance: AZATHIOPRINE
     Indication: Pemphigus
     Dosage: UNK
     Route: 065

REACTIONS (6)
  - Gastrointestinal necrosis [Unknown]
  - Gastric ulcer [Unknown]
  - Oesophageal candidiasis [Unknown]
  - Enteritis infectious [Unknown]
  - Strongyloidiasis [Unknown]
  - Superinfection bacterial [Unknown]
